FAERS Safety Report 10232427 (Version 1)
Quarter: 2014Q2

REPORT INFORMATION
  Report Type: Spontaneous
  Country: US (occurrence: ES)
  Receive Date: 20140612
  Receipt Date: 20140612
  Transmission Date: 20141212
  Serious: Yes (Death, Hospitalization, Other)
  Sender: FDA-Public Use
  Company Number: 2014SP003181

PATIENT
  Age: 77 Year
  Sex: Male
  Weight: 90.7 kg

DRUGS (5)
  1. CARBOPLATIN [Suspect]
     Indication: NON-SMALL CELL LUNG CANCER
     Route: 042
     Dates: start: 20130528
  2. CARBOPLATIN [Suspect]
     Indication: NON-SMALL CELL LUNG CANCER
     Route: 042
     Dates: start: 20130625, end: 20130625
  3. PEMETREXED [Suspect]
     Indication: NON-SMALL CELL LUNG CANCER
     Route: 042
     Dates: start: 20130528
  4. PEMETREXED [Suspect]
     Indication: NON-SMALL CELL LUNG CANCER
     Route: 042
     Dates: start: 20130625, end: 20130625
  5. CRIZOTINIB [Suspect]
     Indication: NON-SMALL CELL LUNG CANCER
     Route: 048
     Dates: start: 20130829, end: 20140507

REACTIONS (12)
  - Disease progression [Fatal]
  - Non-small cell lung cancer [Fatal]
  - Transaminases increased [Unknown]
  - Dyspnoea exertional [Unknown]
  - Confusional state [Unknown]
  - Pain [Unknown]
  - General physical health deterioration [Unknown]
  - Thrombocytopenia [Unknown]
  - Asthenia [Unknown]
  - Decreased appetite [Unknown]
  - Generalised oedema [Recovering/Resolving]
  - Oedema [Recovering/Resolving]
